FAERS Safety Report 9173403 (Version 1)
Quarter: 2013Q1

REPORT INFORMATION
  Report Type: Spontaneous
  Country: US (occurrence: None)
  Receive Date: 20130318
  Receipt Date: 20130318
  Transmission Date: 20140127
  Serious: No
  Sender: FDA-Public Use
  Company Number: None

PATIENT
  Age: 32 Year
  Sex: Female
  Weight: 75.3 kg

DRUGS (1)
  1. NORTRIPTYLINE 25MG CAPSULE GENERIC [Suspect]
     Indication: SLEEP DISORDER
     Dosage: 1 CAPSULE DAILY BEFORE BED PO
     Route: 048

REACTIONS (9)
  - Somnolence [None]
  - Pharyngeal oedema [None]
  - Hypoaesthesia [None]
  - Paraesthesia [None]
  - Abnormal dreams [None]
  - Agitation [None]
  - Anger [None]
  - Feeling abnormal [None]
  - Activities of daily living impaired [None]
